FAERS Safety Report 20417288 (Version 4)
Quarter: 2022Q4

REPORT INFORMATION
  Report Type: Spontaneous
  Country: JP (occurrence: JP)
  Receive Date: 20220202
  Receipt Date: 20221006
  Transmission Date: 20230113
  Serious: Yes (Other)
  Sender: FDA-Public Use
  Company Number: JP-TAKEDA-2022TJP014060

PATIENT

DRUGS (2)
  1. ZEJULA [Suspect]
     Active Substance: NIRAPARIB
     Indication: Ovarian cancer stage IV
     Dosage: UNK
     Route: 048
     Dates: start: 20210218
  2. ZEJULA [Suspect]
     Active Substance: NIRAPARIB
     Dosage: 200 MILLIGRAM
     Route: 048

REACTIONS (3)
  - Ovarian cancer [Unknown]
  - Disease progression [Unknown]
  - Hypokalaemia [Recovered/Resolved]

NARRATIVE: CASE EVENT DATE: 20210415
